FAERS Safety Report 6334646-0 (Version None)
Quarter: 2009Q3

REPORT INFORMATION
  Report Type: 
  Country: None (occurrence: None)
  Receive Date: 20090827
  Receipt Date: 20090813
  Transmission Date: 20100115
  Serious: Yes (Hospitalization)
  Sender: FDA-Public Use
  Company Number: BVT-000274

PATIENT
  Age: 63 Year
  Sex: Female

DRUGS (2)
  1. PALIFERMIN (PALIFERMIN) [Suspect]
     Indication: GASTROINTESTINAL INFLAMMATION
     Dosage: 60 MCG/KG QD INTRAVENOUS (NOT OTHERWISE SPECIFIED))
     Route: 042
     Dates: start: 20071205, end: 20071207
  2. PALIFERMIN (PALIFERMIN) [Suspect]
     Indication: GASTROINTESTINAL INFLAMMATION
     Dosage: 60 MCG/KG QD INTRAVENOUS (NOT OTHERWISE SPECIFIED))
     Route: 042
     Dates: start: 20071210, end: 20071212

REACTIONS (2)
  - NEUTROPHIL COUNT DECREASED [None]
  - PNEUMONIA [None]
